FAERS Safety Report 5591775-7 (Version None)
Quarter: 2008Q1

REPORT INFORMATION
  Report Type: 
  Country: None (occurrence: None)
  Receive Date: 20080115
  Receipt Date: 20080103
  Transmission Date: 20080703
  Serious: Yes (Other)
  Sender: FDA-Public Use
  Company Number: B0360337A

PATIENT
  Age: 35 Year
  Sex: Female

DRUGS (4)
  1. PAROXETINE HYDROCHLORIDE [Suspect]
     Dosage: 20MG PER DAY
     Route: 065
     Dates: start: 19970421
  2. PROZAC [Concomitant]
     Dates: start: 20031009, end: 20060831
  3. CIPRALEX [Concomitant]
     Dates: start: 20050622
  4. LOFEPRAMINE [Concomitant]
     Dates: start: 20050301, end: 20050831

REACTIONS (16)
  - ANXIETY [None]
  - BRUXISM [None]
  - CRYING [None]
  - DEPRESSED MOOD [None]
  - DEPRESSION [None]
  - DISORIENTATION [None]
  - DIZZINESS [None]
  - FATIGUE [None]
  - HEADACHE [None]
  - IRRITABILITY [None]
  - LOSS OF LIBIDO [None]
  - PAIN IN EXTREMITY [None]
  - SUICIDAL IDEATION [None]
  - TINNITUS [None]
  - WEIGHT INCREASED [None]
  - WITHDRAWAL SYNDROME [None]
